FAERS Safety Report 4509664-5 (Version None)
Quarter: 2004Q4

REPORT INFORMATION
  Report Type: 
  Country: None (occurrence: None)
  Receive Date: 20041124
  Receipt Date: 20041101
  Transmission Date: 20050328
  Serious: Yes (Other)
  Sender: FDA-Public Use
  Company Number: 200418415US

PATIENT
  Sex: Female

DRUGS (2)
  1. KETEK [Suspect]
     Indication: RESPIRATORY TRACT INFECTION
     Dosage: DOSE: UNK
  2. UNKNOWN DRUG [Concomitant]
     Dosage: DOSE: UNK

REACTIONS (2)
  - BLOOD PRESSURE DECREASED [None]
  - CEREBROVASCULAR ACCIDENT [None]
